FAERS Safety Report 7093580-1 (Version None)
Quarter: 2010Q4

REPORT INFORMATION
  Report Type: 
  Country: None (occurrence: None)
  Receive Date: 20101110
  Receipt Date: 20101103
  Transmission Date: 20110411
  Serious: Yes (Hospitalization)
  Sender: FDA-Public Use
  Company Number: US-AMGEN-TCS403968

PATIENT

DRUGS (2)
  1. ENBREL [Suspect]
     Indication: RHEUMATOID ARTHRITIS
     Dosage: 50 MG, QWK
     Route: 058
     Dates: start: 20090301, end: 20101001
  2. ENBREL [Suspect]
     Dates: start: 20090301, end: 20101001

REACTIONS (7)
  - INCISION SITE COMPLICATION [None]
  - INCISION SITE ERYTHEMA [None]
  - INJECTION SITE ERYTHEMA [None]
  - INJECTION SITE PAIN [None]
  - LOWER LIMB FRACTURE [None]
  - POST PROCEDURAL DISCHARGE [None]
  - TIBIA FRACTURE [None]
